FAERS Safety Report 6759114-3 (Version None)
Quarter: 2010Q2

REPORT INFORMATION
  Report Type: 
  Country: None (occurrence: None)
  Receive Date: 20100607
  Receipt Date: 20100603
  Transmission Date: 20101027
  Serious: Yes (Other)
  Sender: FDA-Public Use
  Company Number: CHPA2010US09498

PATIENT
  Sex: Female

DRUGS (1)
  1. VOLTAREN [Suspect]
     Indication: ARTHRITIS
     Dosage: UNK, UNK
     Route: 061
     Dates: end: 20100527

REACTIONS (4)
  - ACNE [None]
  - APPLICATION SITE DRYNESS [None]
  - OSTEITIS DEFORMANS [None]
  - WRONG TECHNIQUE IN DRUG USAGE PROCESS [None]
